FAERS Safety Report 19513460 (Version 2)
Quarter: 2022Q1

REPORT INFORMATION
  Report Type: Spontaneous
  Country: US (occurrence: US)
  Receive Date: 20210709
  Receipt Date: 20220223
  Transmission Date: 20220424
  Serious: Yes (Other)
  Sender: FDA-Public Use
  Company Number: US-GILEAD-2021-0539475

PATIENT
  Age: 60 Year
  Sex: Female
  Weight: 66.213 kg

DRUGS (59)
  1. COMPLERA [Suspect]
     Active Substance: EMTRICITABINE\RILPIVIRINE HYDROCHLORIDE\TENOFOVIR DISOPROXIL FUMARATE
     Indication: HIV infection
     Dosage: UNK
     Route: 048
     Dates: start: 2011
  2. COMPLERA [Suspect]
     Active Substance: EMTRICITABINE\RILPIVIRINE HYDROCHLORIDE\TENOFOVIR DISOPROXIL FUMARATE
     Dosage: UNK
     Route: 048
     Dates: start: 201306, end: 20161130
  3. ATRIPLA [Suspect]
     Active Substance: EFAVIRENZ\EMTRICITABINE\TENOFOVIR DISOPROXIL FUMARATE
     Indication: HIV infection
     Dosage: UNK
     Route: 048
     Dates: start: 201103, end: 201306
  4. BIKTARVY [Concomitant]
     Active Substance: BICTEGRAVIR SODIUM\EMTRICITABINE\TENOFOVIR ALAFENAMIDE FUMARATE
  5. ODEFSEY [Concomitant]
     Active Substance: EMTRICITABINE\RILPIVIRINE HYDROCHLORIDE\TENOFOVIR ALAFENAMIDE FUMARATE
  6. ALBUTEROL SULFATE [Concomitant]
     Active Substance: ALBUTEROL SULFATE
  7. AMLODIPINE [Concomitant]
     Active Substance: AMLODIPINE BESYLATE
  8. AMMONIUM LACTATE [Concomitant]
     Active Substance: AMMONIUM LACTATE
  9. AMOXICILLIN [Concomitant]
     Active Substance: AMOXICILLIN
  10. ASPIRIN [Concomitant]
     Active Substance: ASPIRIN
  11. ASPIRIN [Concomitant]
     Active Substance: ASPIRIN
  12. AZELASTINE [Concomitant]
     Active Substance: AZELASTINE
  13. AZITHROMYCIN [Concomitant]
     Active Substance: AZITHROMYCIN
  14. AZULFIDINE [Concomitant]
     Active Substance: SULFASALAZINE
  15. BENZONATATE [Concomitant]
     Active Substance: BENZONATATE
  16. BETAMETHASONE [Concomitant]
     Active Substance: BETAMETHASONE
  17. BUDESONIDE [Concomitant]
     Active Substance: BUDESONIDE
  18. CALCIPOTRIENE [Concomitant]
     Active Substance: CALCIPOTRIENE
  19. CERAVE PSORIASIS [Concomitant]
  20. CETIRIZINE [Concomitant]
     Active Substance: CETIRIZINE HYDROCHLORIDE
  21. CHANTIX [Concomitant]
     Active Substance: VARENICLINE TARTRATE
  22. CICLOPIROX [Concomitant]
     Active Substance: CICLOPIROX
  23. CLINDAMYCIN [Concomitant]
     Active Substance: CLINDAMYCIN
  24. DEEP SEA PREMIUM SALINE [Concomitant]
  25. DICLOFENAC [Concomitant]
     Active Substance: DICLOFENAC
  26. DIPHENHIST [Concomitant]
     Active Substance: DIPHENHYDRAMINE HYDROCHLORIDE
  27. DOXYCYCLINE [Concomitant]
     Active Substance: DOXYCYCLINE
  28. EAR WAX REMOVAL [Concomitant]
     Active Substance: CARBAMIDE PEROXIDE
  29. ESOMEPRAZOLE [Concomitant]
     Active Substance: ESOMEPRAZOLE
  30. HALOBETASOL PROPIONATE [Concomitant]
     Active Substance: HALOBETASOL PROPIONATE
  31. IBUPROFEN [Concomitant]
     Active Substance: IBUPROFEN
  32. INCRUSE ELLIPTA [Concomitant]
     Active Substance: UMECLIDINIUM BROMIDE
  33. IOPHEN [Concomitant]
  34. KETOCONAZOLE [Concomitant]
     Active Substance: KETOCONAZOLE
  35. KETOPROFEN [Concomitant]
     Active Substance: KETOPROFEN
  36. LIDOCAINE [Concomitant]
     Active Substance: LIDOCAINE
  37. LOSARTAN [Concomitant]
     Active Substance: LOSARTAN
  38. MEDROL [Concomitant]
     Active Substance: METHYLPREDNISOLONE
  39. MELOXICAM [Concomitant]
     Active Substance: MELOXICAM
  40. METOPROLOL [Concomitant]
     Active Substance: METOPROLOL
  41. MOMETASONE [Concomitant]
     Active Substance: MOMETASONE
  42. MONTELUKAST [Concomitant]
     Active Substance: MONTELUKAST SODIUM
  43. MUPIROCIN [Concomitant]
     Active Substance: MUPIROCIN
  44. DEXAMETHASONE\NEOMYCIN\POLYMYXIN B [Concomitant]
     Active Substance: DEXAMETHASONE\NEOMYCIN\POLYMYXIN B
  45. NICOTINE [Concomitant]
     Active Substance: NICOTINE
  46. OLOPATADINE [Concomitant]
     Active Substance: OLOPATADINE
  47. OMEGA-3-ACID ETHYL ESTER [Concomitant]
     Active Substance: OMEGA-3-ACID ETHYL ESTERS
  48. OMEPRAZOLE\SODIUM BICARBONATE [Concomitant]
     Active Substance: OMEPRAZOLE\SODIUM BICARBONATE
  49. PROMETHAZINE [Concomitant]
     Active Substance: PROMETHAZINE HYDROCHLORIDE
  50. RISEDRONATE SODIUM [Concomitant]
     Active Substance: RISEDRONATE SODIUM
  51. ROBAFEN [GUAIFENESIN] [Concomitant]
  52. ROFLUMILAST [Concomitant]
     Active Substance: ROFLUMILAST
  53. SILTUSSIN [GUAIFENESIN] [Concomitant]
  54. SPIRIVA [Concomitant]
     Active Substance: TIOTROPIUM BROMIDE MONOHYDRATE
  55. SYMBICORT [Concomitant]
     Active Substance: BUDESONIDE\FORMOTEROL FUMARATE DIHYDRATE
  56. TRAMADOL [Concomitant]
     Active Substance: TRAMADOL
  57. TRIAMCINOLONE [Concomitant]
     Active Substance: TRIAMCINOLONE
  58. VENTOLIN HFA [Concomitant]
     Active Substance: ALBUTEROL SULFATE
  59. ZOLPIDEM [Concomitant]
     Active Substance: ZOLPIDEM TARTRATE

REACTIONS (12)
  - Osteoporosis [Not Recovered/Not Resolved]
  - Hip fracture [Not Recovered/Not Resolved]
  - Ankle fracture [Unknown]
  - Bone density decreased [Unknown]
  - Emotional distress [Not Recovered/Not Resolved]
  - Anhedonia [Not Recovered/Not Resolved]
  - Pain [Not Recovered/Not Resolved]
  - Lower limb fracture [Not Recovered/Not Resolved]
  - Musculoskeletal stiffness [Unknown]
  - Exercise tolerance decreased [Not Recovered/Not Resolved]
  - Anxiety [Not Recovered/Not Resolved]
  - Asthenia [Unknown]

NARRATIVE: CASE EVENT DATE: 20180301
